FAERS Safety Report 22320365 (Version 1)
Quarter: 2023Q2

REPORT INFORMATION
  Report Type: Spontaneous
  Country: ES (occurrence: ES)
  Receive Date: 20230515
  Receipt Date: 20230515
  Transmission Date: 20230721
  Serious: Yes (Other)
  Sender: FDA-Public Use
  Company Number: None

PATIENT
  Age: 35 Year
  Sex: Male

DRUGS (8)
  1. PEGFILGRASTIM [Suspect]
     Active Substance: PEGFILGRASTIM
     Indication: Chemotherapy cytokine prophylaxis
     Dosage: 6 MG ONCE A WEEK, RECEIVED A DOSE
     Route: 058
     Dates: start: 20230328
  2. PEGFILGRASTIM [Suspect]
     Active Substance: PEGFILGRASTIM
     Dosage: 6 MILLIGRAM, QW
     Route: 058
     Dates: start: 20230404
  3. CISPLATIN [Suspect]
     Active Substance: CISPLATIN
     Indication: Germ cell neoplasm
     Dosage: 39.4 MG/ DAY, DAYS 1-5 OF THE 21-DAY CYCLE. LAST
     Route: 042
     Dates: start: 20230213
  4. ETOPOSIDE [Suspect]
     Active Substance: ETOPOSIDE
     Indication: Germ cell neoplasm
     Dosage: 197 MG /DAYS 1-5 OF THE 21-DAY CYCLE LAST DOSE
     Route: 042
     Dates: start: 20230213
  5. BLEOMYCIN SULFATE [Suspect]
     Active Substance: BLEOMYCIN SULFATE
     Indication: Germ cell neoplasm
     Dosage: RECEIVED ONE DOSE ON 04-APR-2023, SAME DAY OF
     Route: 042
     Dates: start: 20230213
  6. BLEOMYCIN SULFATE [Suspect]
     Active Substance: BLEOMYCIN SULFATE
     Dosage: RECEIVED ONE DOSE ON 04-APR-2023, SAME DAY OF
     Route: 042
     Dates: start: 20230404
  7. ZIEXTENZO [Suspect]
     Active Substance: PEGFILGRASTIM-BMEZ
     Indication: Chemotherapy cytokine prophylaxis
     Dosage: 6 MILLIGRAM, 1 TOTAL
     Route: 058
     Dates: start: 20230404, end: 20230404
  8. PEGFILGRASTIM [Concomitant]
     Active Substance: PEGFILGRASTIM
     Indication: Prophylaxis
     Dosage: 6 MILLIGRAM, Q3W
     Route: 058
     Dates: start: 20230221, end: 20230314

REACTIONS (2)
  - Syncope [Recovered/Resolved]
  - Malaise [Recovered/Resolved]

NARRATIVE: CASE EVENT DATE: 20230404
